FAERS Safety Report 20324622 (Version 1)
Quarter: 2022Q1

REPORT INFORMATION
  Report Type: Spontaneous
  Country: US (occurrence: US)
  Receive Date: 20220111
  Receipt Date: 20220111
  Transmission Date: 20220423
  Serious: No
  Sender: FDA-Public Use
  Company Number: US-FOUNDATIONCONSUMERHC-2021-US-025100

PATIENT
  Age: 20 Year
  Sex: Female
  Weight: 62.6 kg

DRUGS (1)
  1. PLAN B ONE-STEP [Suspect]
     Active Substance: LEVONORGESTREL
     Indication: Post coital contraception
     Dosage: ONE TABLET ON 11/4 AND ONE TABLET ON 11/5
     Route: 048
     Dates: start: 20211104, end: 20211105

REACTIONS (4)
  - Vaginal haemorrhage [Not Recovered/Not Resolved]
  - Breast tenderness [Not Recovered/Not Resolved]
  - Intentional product misuse [Recovered/Resolved]
  - Product use in unapproved indication [Recovered/Resolved]

NARRATIVE: CASE EVENT DATE: 20211104
